FAERS Safety Report 20393478 (Version 1)
Quarter: 2022Q1

REPORT INFORMATION
  Report Type: Spontaneous
  Country: PK (occurrence: PK)
  Receive Date: 20220128
  Receipt Date: 20220128
  Transmission Date: 20220423
  Serious: Yes (Other)
  Sender: FDA-Public Use
  Company Number: PK-UCBSA-2022003813

PATIENT
  Age: 4 Year
  Sex: Male

DRUGS (6)
  1. KEPPRA [Suspect]
     Active Substance: LEVETIRACETAM
     Indication: Seizure
     Dosage: 20 MG/KG/DOSE, TWICE DAILY
  2. VALPROIC ACID [Concomitant]
     Active Substance: VALPROIC ACID
     Indication: Seizure
     Dosage: 20 MG/KG/DAY
  3. PHENYTOIN [Concomitant]
     Active Substance: PHENYTOIN
     Indication: Seizure
     Dosage: 8 MG/KG/DAY
  4. VALPROATE [Concomitant]
     Active Substance: VALPROIC ACID
     Indication: Seizure
     Dosage: 40 MG/KG/DAY
  5. VALPROATE [Concomitant]
     Active Substance: VALPROIC ACID
     Dosage: 60 MG/KG/DAY DIVIDED IN 2 DOSES
  6. METHYLPREDNISOLONE [Concomitant]
     Active Substance: METHYLPREDNISOLONE
     Indication: Seizure
     Dosage: 400 MG/M2/DAY

REACTIONS (1)
  - Generalised tonic-clonic seizure [Recovering/Resolving]
